FAERS Safety Report 13863339 (Version 1)
Quarter: 2017Q3

REPORT INFORMATION
  Report Type: Spontaneous
  Country: SI (occurrence: SI)
  Receive Date: 20170814
  Receipt Date: 20170814
  Transmission Date: 20171127
  Serious: Yes (Other)
  Sender: FDA-Public Use
  Company Number: SI-ROCHE-1976902

PATIENT
  Age: 19 Year
  Sex: Male

DRUGS (7)
  1. PRONISON [Suspect]
     Active Substance: PREDNISONE
     Indication: GASTROINTESTINAL DISORDER
     Route: 065
  2. VITAMIN B12 [Concomitant]
     Active Substance: CYANOCOBALAMIN
     Indication: ANAEMIA MEGALOBLASTIC
  3. BUDESONID [Suspect]
     Active Substance: BUDESONIDE
     Indication: ENTERITIS
  4. METHYLPREDNISOLONE. [Suspect]
     Active Substance: METHYLPREDNISOLONE
     Indication: GASTROINTESTINAL DISORDER
     Dosage: PULSE THERAPY
     Route: 065
  5. VITAMIN B12 [Concomitant]
     Active Substance: CYANOCOBALAMIN
     Indication: ANAEMIA VITAMIN B12 DEFICIENCY
     Route: 030
  6. SOMATROPIN. [Suspect]
     Active Substance: SOMATROPIN
     Indication: GROWTH RETARDATION
     Route: 065
  7. BUDESONID [Suspect]
     Active Substance: BUDESONIDE
     Indication: GASTROINTESTINAL DISORDER
     Route: 065

REACTIONS (4)
  - Adenocarcinoma gastric [Recovered/Resolved]
  - Intentional product use issue [Unknown]
  - Off label use [Unknown]
  - Malignant melanoma in situ [Unknown]
